FAERS Safety Report 26087503 (Version 1)
Quarter: 2025Q4

REPORT INFORMATION
  Report Type: Spontaneous
  Country: US (occurrence: US)
  Receive Date: 20251125
  Receipt Date: 20251125
  Transmission Date: 20260118
  Serious: Yes (Hospitalization)
  Sender: NOVO NORDISK
  Company Number: US-NOVOPROD-1570585

PATIENT
  Sex: Male

DRUGS (2)
  1. OZEMPIC [Suspect]
     Active Substance: SEMAGLUTIDE
     Dosage: 1 MG
  2. OZEMPIC [Suspect]
     Active Substance: SEMAGLUTIDE
     Indication: Product used for unknown indication
     Dosage: 2 MG

REACTIONS (1)
  - Gastrointestinal disorder [Unknown]
